FAERS Safety Report 4810330-7 (Version None)
Quarter: 2005Q4

REPORT INFORMATION
  Report Type: 
  Country: None (occurrence: None)
  Receive Date: 20051026
  Receipt Date: 20051017
  Transmission Date: 20060501
  Serious: Yes (Life-Threatening)
  Sender: FDA-Public Use
  Company Number: US-JNJFOC-20051004240

PATIENT
  Age: 9 Year
  Sex: Male

DRUGS (2)
  1. RISPERDAL [Suspect]
     Indication: DRUG USE FOR UNKNOWN INDICATION
  2. WELLBUTRIN [Concomitant]

REACTIONS (2)
  - DYSTONIA [None]
  - RESPIRATORY ARREST [None]
